FAERS Safety Report 10977076 (Version 1)
Quarter: 2015Q2

REPORT INFORMATION
  Report Type: Report from Study
  Country: US (occurrence: US)
  Receive Date: 20150402
  Receipt Date: 20150402
  Transmission Date: 20150821
  Serious: No
  Sender: FDA-Public Use
  Company Number: US-AMGEN-USASL2015028443

PATIENT
  Sex: Female
  Weight: 2.69 kg

DRUGS (1)
  1. ENBREL [Suspect]
     Active Substance: ETANERCEPT
     Indication: MATERNAL EXPOSURE BEFORE PREGNANCY
     Dosage: 50 MG, QWK
     Route: 064
     Dates: start: 201110

REACTIONS (3)
  - Small for dates baby [Unknown]
  - Jaundice neonatal [Unknown]
  - Breast feeding [Unknown]
